FAERS Safety Report 14937062 (Version 3)
Quarter: 2019Q1

REPORT INFORMATION
  Report Type: Report from Study
  Country: JP (occurrence: JP)
  Receive Date: 20180525
  Receipt Date: 20190315
  Transmission Date: 20190417
  Serious: Yes (Other)
  Sender: FDA-Public Use
  Company Number: JP-ALXN-A201806110AA

PATIENT

DRUGS (44)
  1. NEORAL [Concomitant]
     Active Substance: CYCLOSPORINE
     Dosage: 125 MG, DAILY
     Route: 065
     Dates: start: 20170712, end: 20170712
  2. BAKTAR [Concomitant]
     Active Substance: SULFAMETHOXAZOLE\TRIMETHOPRIM
     Indication: PROPHYLAXIS
     Dosage: 2 DF, MON, THU
     Route: 048
     Dates: start: 20161207
  3. BAKTAR [Concomitant]
     Active Substance: SULFAMETHOXAZOLE\TRIMETHOPRIM
     Dosage: 2 DF, MON, THU
     Route: 048
     Dates: start: 20170614, end: 20170622
  4. BAKTAR [Concomitant]
     Active Substance: SULFAMETHOXAZOLE\TRIMETHOPRIM
     Dosage: 2 DF, MON,THU
     Route: 048
     Dates: start: 20171004, end: 20171012
  5. BAKTAR [Concomitant]
     Active Substance: SULFAMETHOXAZOLE\TRIMETHOPRIM
     Dosage: 2 DF, MON,THU
     Route: 048
     Dates: start: 20171101, end: 20171109
  6. LANSOPRAZOLE. [Concomitant]
     Active Substance: LANSOPRAZOLE
     Dosage: 15 MG, DAILY
     Route: 065
     Dates: start: 20171004, end: 20171010
  7. NEORAL [Concomitant]
     Active Substance: CYCLOSPORINE
     Dosage: 150 MG, DAILY
     Route: 065
     Dates: start: 20170518, end: 20170603
  8. ZOVIRAX [Concomitant]
     Active Substance: ACYCLOVIR
     Dosage: 200 MG, UNK
     Route: 065
     Dates: start: 20170420, end: 20170510
  9. BAKTAR [Concomitant]
     Active Substance: SULFAMETHOXAZOLE\TRIMETHOPRIM
     Dosage: 2 DF, MON,THU
     Route: 048
  10. LANSOPRAZOLE. [Concomitant]
     Active Substance: LANSOPRAZOLE
     Dosage: 15 MG, UNK
     Route: 065
     Dates: start: 20180124, end: 20180130
  11. POLARAMINE [Concomitant]
     Active Substance: DEXCHLORPHENIRAMINE MALEATE
     Indication: PROPHYLAXIS
     Dosage: 2 MG, Q2W
     Route: 065
     Dates: start: 20170405, end: 20180322
  12. SAXIZON [Concomitant]
     Active Substance: HYDROCORTISONE SODIUM SUCCINATE
     Indication: PROPHYLAXIS
     Dosage: 50 MG, Q2W
     Route: 065
     Dates: start: 20170405, end: 20170614
  13. NEORAL [Concomitant]
     Active Substance: CYCLOSPORINE
     Dosage: 175 MG, UNK
     Route: 065
     Dates: start: 20170517, end: 20170517
  14. NEORAL [Concomitant]
     Active Substance: CYCLOSPORINE
     Dosage: 50 MG, BID
     Route: 065
     Dates: start: 20170613, end: 20170613
  15. NEORAL [Concomitant]
     Active Substance: CYCLOSPORINE
     Dosage: 25 MG, UNK
     Route: 065
     Dates: start: 20180322
  16. BAKTAR [Concomitant]
     Active Substance: SULFAMETHOXAZOLE\TRIMETHOPRIM
     Dosage: 2 DF, MON,THU
     Route: 048
     Dates: start: 20170906, end: 20170914
  17. BAKTAR [Concomitant]
     Active Substance: SULFAMETHOXAZOLE\TRIMETHOPRIM
     Dosage: 2 DF, MON,THU
     Route: 048
     Dates: start: 20171227, end: 20180104
  18. SOLIRIS [Suspect]
     Active Substance: ECULIZUMAB
     Dosage: 900 MG, UNK
     Route: 042
     Dates: start: 20170208
  19. NEORAL [Concomitant]
     Active Substance: CYCLOSPORINE
     Dosage: 175 MG, UNK
     Route: 065
     Dates: start: 20170419, end: 20170506
  20. NEORAL [Concomitant]
     Active Substance: CYCLOSPORINE
     Dosage: 75 MG, UNK
     Route: 065
     Dates: start: 20171101, end: 20180124
  21. BAKTAR [Concomitant]
     Active Substance: SULFAMETHOXAZOLE\TRIMETHOPRIM
     Dosage: 2 DF, MON,THU
     Route: 048
     Dates: start: 20170712, end: 20170720
  22. LANSOPRAZOLE. [Concomitant]
     Active Substance: LANSOPRAZOLE
     Dosage: 15 MG, UNK
     Route: 065
     Dates: start: 20170531, end: 20170809
  23. NEORAL [Concomitant]
     Active Substance: CYCLOSPORINE
     Indication: APLASTIC ANAEMIA
     Dosage: 175 MG, DAILY
     Route: 065
     Dates: start: 20170323, end: 20170408
  24. NEORAL [Concomitant]
     Active Substance: CYCLOSPORINE
     Dosage: 100 MG, UNK
     Route: 065
     Dates: start: 20170906, end: 20171031
  25. NEORAL [Concomitant]
     Active Substance: CYCLOSPORINE
     Dosage: 50 MG, UNK
     Route: 065
     Dates: start: 20180125, end: 20180321
  26. ZOVIRAX [Concomitant]
     Active Substance: ACYCLOVIR
     Indication: PROPHYLAXIS
     Dosage: 200 MG, DAILY
     Route: 065
     Dates: start: 20161208, end: 20170411
  27. BAKTAR [Concomitant]
     Active Substance: SULFAMETHOXAZOLE\TRIMETHOPRIM
     Dosage: 2 DF, MON,THU
     Route: 048
     Dates: start: 20170809, end: 20170817
  28. LANSOPRAZOLE. [Concomitant]
     Active Substance: LANSOPRAZOLE
     Dosage: 15 MG, UNK
     Route: 065
     Dates: start: 20180221, end: 20180227
  29. LOXOPROFEN [Concomitant]
     Active Substance: LOXOPROFEN
     Indication: PROPHYLAXIS
     Dosage: 60 MG, Q2W
     Route: 065
     Dates: start: 20170405, end: 20180307
  30. NEORAL [Concomitant]
     Active Substance: CYCLOSPORINE
     Dosage: 150 MG, DAILY
     Route: 065
     Dates: start: 20170610, end: 20170612
  31. NEORAL [Concomitant]
     Active Substance: CYCLOSPORINE
     Dosage: 150 MG, DAILY
     Route: 065
     Dates: start: 20170614, end: 20170711
  32. BAKTAR [Concomitant]
     Active Substance: SULFAMETHOXAZOLE\TRIMETHOPRIM
     Dosage: 2 DF, MON,THU
     Route: 048
     Dates: start: 20170517, end: 20170525
  33. BAKTAR [Concomitant]
     Active Substance: SULFAMETHOXAZOLE\TRIMETHOPRIM
     Dosage: 2 DF, MON,THU
     Route: 048
     Dates: start: 20180221, end: 20180301
  34. BAKTAR [Concomitant]
     Active Substance: SULFAMETHOXAZOLE\TRIMETHOPRIM
     Dosage: 2 DF, MON, THU
     Route: 048
     Dates: start: 20180322, end: 20180330
  35. SOLIRIS [Suspect]
     Active Substance: ECULIZUMAB
     Indication: PAROXYSMAL NOCTURNAL HAEMOGLOBINURIA
     Dosage: 600 MG, QW
     Route: 042
     Dates: start: 20170111, end: 20170201
  36. NEORAL [Concomitant]
     Active Substance: CYCLOSPORINE
     Dosage: 75 MG, DAILY
     Route: 065
     Dates: start: 20170507, end: 20170516
  37. NEORAL [Concomitant]
     Active Substance: CYCLOSPORINE
     Dosage: 50 MG, DAILY
     Route: 065
     Dates: start: 20170604, end: 20170609
  38. ZOVIRAX [Concomitant]
     Active Substance: ACYCLOVIR
     Dosage: 75 MG, UNK
     Route: 065
     Dates: start: 20170507, end: 20170603
  39. LANSOPRAZOLE. [Concomitant]
     Active Substance: LANSOPRAZOLE
     Dosage: 15 MG, UNK
     Route: 065
     Dates: start: 20170322, end: 20170328
  40. NEORAL [Concomitant]
     Active Substance: CYCLOSPORINE
     Dosage: 75 MG, DAILY
     Route: 065
     Dates: start: 20170409, end: 20170418
  41. BAKTAR [Concomitant]
     Active Substance: SULFAMETHOXAZOLE\TRIMETHOPRIM
     Dosage: 2 DF, MON,THU
     Route: 048
     Dates: start: 20170419, end: 20170426
  42. BAKTAR [Concomitant]
     Active Substance: SULFAMETHOXAZOLE\TRIMETHOPRIM
     Dosage: 2 DF, MON,THU
     Route: 048
     Dates: start: 20171129, end: 20171207
  43. BAKTAR [Concomitant]
     Active Substance: SULFAMETHOXAZOLE\TRIMETHOPRIM
     Dosage: 2 DF, MON,THU
     Route: 048
     Dates: start: 20180124, end: 20180201
  44. LANSOPRAZOLE. [Concomitant]
     Active Substance: LANSOPRAZOLE
     Indication: PROPHYLAXIS AGAINST GASTROINTESTINAL ULCER
     Dosage: 15 MG, DAILY
     Route: 065
     Dates: start: 20170308, end: 20170417

REACTIONS (1)
  - Anaphylactic reaction [Recovered/Resolved]

NARRATIVE: CASE EVENT DATE: 20170405
